FAERS Safety Report 7593889-9 (Version None)
Quarter: 2011Q3

REPORT INFORMATION
  Report Type: 
  Country: None (occurrence: None)
  Receive Date: 20110706
  Receipt Date: 20110629
  Transmission Date: 20111222
  Serious: Yes (Other)
  Sender: FDA-Public Use
  Company Number: US-B.I. PHARMACEUTICALS,INC./RIDGEFIELD-2011-BP-15056PF

PATIENT
  Sex: Male

DRUGS (10)
  1. COUMADIN [Concomitant]
  2. MEDICATIONS NOT FURTHER SPECIFIED [Concomitant]
  3. SPIRIVA [Suspect]
     Indication: INFLUENZA
     Route: 055
     Dates: end: 20110516
  4. SPIRIVA [Suspect]
     Indication: EMPHYSEMA
  5. ALBUTEROL SULATE [Concomitant]
     Indication: INFLUENZA
     Dates: start: 20090501
  6. SPIRIVA [Suspect]
     Indication: ATRIAL FIBRILLATION
  7. ALBUTEROL SULATE [Concomitant]
     Indication: WHEEZING
  8. SPIRIVA [Suspect]
     Indication: WHEEZING
     Route: 055
     Dates: start: 20110519
  9. DILTIAZEM [Concomitant]
  10. SPIRIVA [Suspect]
     Indication: CHRONIC OBSTRUCTIVE PULMONARY DISEASE

REACTIONS (6)
  - CARDIAC FUNCTION TEST [None]
  - PROTHROMBIN TIME PROLONGED [None]
  - INTERNATIONAL NORMALISED RATIO INCREASED [None]
  - PRODUCT CONTAMINATION [None]
  - MYOCARDIAL INFARCTION [None]
  - STRESS [None]
